FAERS Safety Report 18066735 (Version 4)
Quarter: 2020Q3

REPORT INFORMATION
  Report Type: Spontaneous
  Country: US (occurrence: US)
  Receive Date: 20200724
  Receipt Date: 20200908
  Transmission Date: 20201103
  Serious: No
  Sender: FDA-Public Use
  Company Number: US-PFIZER INC-2020280697

PATIENT
  Age: 71 Year
  Sex: Male
  Weight: 109.32 kg

DRUGS (1)
  1. XELJANZ XR [Suspect]
     Active Substance: TOFACITINIB CITRATE
     Indication: PSORIATIC ARTHROPATHY
     Dosage: 11 MG, 1X/DAY
     Route: 048

REACTIONS (3)
  - Bradykinesia [Not Recovered/Not Resolved]
  - Dysstasia [Recovering/Resolving]
  - Therapeutic response unexpected [Unknown]
